FAERS Safety Report 6167897-9 (Version None)
Quarter: 2009Q2

REPORT INFORMATION
  Report Type: 
  Country: None (occurrence: None)
  Receive Date: 20090427
  Receipt Date: 20090417
  Transmission Date: 20091009
  Serious: Yes (Hospitalization)
  Sender: FDA-Public Use
  Company Number: US-BIOGENIDEC-2009BI012134

PATIENT
  Age: 77 Year
  Sex: Female

DRUGS (3)
  1. AVONEX [Suspect]
     Indication: MULTIPLE SCLEROSIS
     Route: 030
     Dates: start: 20021019
  2. AVONEX [Suspect]
     Route: 030
     Dates: start: 20030617, end: 20070814
  3. AVONEX [Suspect]
     Route: 030
     Dates: start: 20080618

REACTIONS (2)
  - FACE INJURY [None]
  - FALL [None]
